FAERS Safety Report 7524567-X (Version None)
Quarter: 2011Q2

REPORT INFORMATION
  Report Type: 
  Country: None (occurrence: None)
  Receive Date: 20110525
  Receipt Date: 20110510
  Transmission Date: 20111010
  Serious: Yes (Hospitalization, Other)
  Sender: FDA-Public Use
  Company Number: 2011050145

PATIENT
  Age: 54 Year
  Sex: Female

DRUGS (1)
  1. ALPROSTADIL [Suspect]
     Indication: SKIN ULCER
     Dosage: IV
     Route: 042
     Dates: start: 20100101, end: 20100101

REACTIONS (5)
  - GASTRIC ANTRAL VASCULAR ECTASIA [None]
  - HAEMOGLOBIN DECREASED [None]
  - OESOPHAGEAL ULCER [None]
  - HAEMATEMESIS [None]
  - OESOPHAGITIS [None]
